FAERS Safety Report 12429920 (Version 2)
Quarter: 2017Q2

REPORT INFORMATION
  Report Type: Spontaneous
  Country: US (occurrence: US)
  Receive Date: 20160602
  Receipt Date: 20170602
  Transmission Date: 20170830
  Serious: No
  Sender: FDA-Public Use
  Company Number: US-KADMON PHARMACEUTICALS, LLC-KAD201506-001906

PATIENT
  Age: 43 Year
  Sex: Female

DRUGS (2)
  1. RIBAVIRIN. [Suspect]
     Active Substance: RIBAVIRIN
     Indication: HEPATITIS C
     Route: 048
  2. INTERFERON [Suspect]
     Active Substance: INTERFERON
     Indication: HEPATITIS C

REACTIONS (9)
  - Bone loss [Unknown]
  - Arthralgia [Unknown]
  - Stress [Unknown]
  - Headache [Unknown]
  - Memory impairment [Unknown]
  - Panic disorder [Unknown]
  - Anxiety [Unknown]
  - Gastric pH increased [Unknown]
  - Treatment failure [Unknown]
